FAERS Safety Report 9123975 (Version 1)
Quarter: 2013Q1

REPORT INFORMATION
  Report Type: Spontaneous
  Country: GB (occurrence: GB)
  Receive Date: 20130116
  Receipt Date: 20130116
  Transmission Date: 20140127
  Serious: Yes (Other)
  Sender: FDA-Public Use
  Company Number: GB-TEVA-379356ISR

PATIENT
  Sex: Female

DRUGS (6)
  1. CIPROFLOXACIN [Suspect]
     Indication: LUNG INFECTION
     Dosage: 250 MILLIGRAM DAILY; DOSE TITRATED.
     Route: 048
     Dates: start: 201212
  2. CIPROFLOXACIN [Suspect]
     Dosage: 500 MILLIGRAM DAILY;
     Route: 048
     Dates: start: 201212
  3. THYROXINE [Concomitant]
     Indication: HYPOTHYROIDISM
  4. INSULIN [Concomitant]
     Indication: TYPE 1 DIABETES MELLITUS
  5. DIAZEPAM [Concomitant]
     Indication: PROPHYLAXIS
     Dosage: TAKEN INTERMITTENTLY
  6. DIAZEPAM [Concomitant]
     Indication: EPILEPSY

REACTIONS (7)
  - Syncope [Unknown]
  - Head injury [Unknown]
  - Rash [Unknown]
  - Malaise [Unknown]
  - Somnolence [Unknown]
  - Expired drug administered [Unknown]
  - Dehydration [Unknown]
